FAERS Safety Report 14616330 (Version 6)
Quarter: 2019Q3

REPORT INFORMATION
  Report Type: Spontaneous
  Country: US (occurrence: US)
  Receive Date: 20180309
  Receipt Date: 20190731
  Transmission Date: 20191004
  Serious: Yes (Hospitalization, Other)
  Sender: FDA-Public Use
  Company Number: US-PFIZER INC-2018000645

PATIENT
  Age: 67 Year
  Sex: Female
  Weight: 81.63 kg

DRUGS (5)
  1. EFFEXOR [Concomitant]
     Active Substance: VENLAFAXINE HYDROCHLORIDE
     Indication: EMOTIONAL DISORDER
     Dosage: 150 MG, 1X/DAY
  2. OXYCODONE [Concomitant]
     Active Substance: OXYCODONE
     Indication: BONE PAIN
     Dosage: UNK, 2X/DAY
  3. REVATIO [Suspect]
     Active Substance: SILDENAFIL CITRATE
     Indication: PULMONARY HYPERTENSION
     Dosage: 20 MG, 3X/DAY
     Route: 048
  4. REVATIO [Suspect]
     Active Substance: SILDENAFIL CITRATE
     Indication: PULMONARY ARTERIAL HYPERTENSION
     Dosage: 40 MG, 3X/DAY
     Route: 048
  5. OXYCODONE [Concomitant]
     Active Substance: OXYCODONE
     Indication: LEUKAEMIA

REACTIONS (4)
  - Pneumonia [Recovered/Resolved]
  - Prescribed overdose [Unknown]
  - Chronic obstructive pulmonary disease [Unknown]
  - Dyspnoea [Unknown]

NARRATIVE: CASE EVENT DATE: 2015
